FAERS Safety Report 5567150-8 (Version None)
Quarter: 2007Q4

REPORT INFORMATION
  Report Type: 
  Country: None (occurrence: None)
  Receive Date: 20071219
  Receipt Date: 20071207
  Transmission Date: 20080405
  Serious: Yes (Hospitalization)
  Sender: FDA-Public Use
  Company Number: GB-GENENTECH-249808

PATIENT
  Sex: Female

DRUGS (4)
  1. RITUXIMAB [Suspect]
     Indication: B-CELL LYMPHOMA
     Dosage: UNK, UNK
     Dates: start: 20070906
  2. CISPLATIN [Suspect]
     Indication: B-CELL LYMPHOMA
     Dates: start: 20070914
  3. CYTARABINE [Suspect]
     Indication: B-CELL LYMPHOMA
     Dates: start: 20070914
  4. DEXAMETHASONE TAB [Suspect]
     Indication: B-CELL LYMPHOMA
     Dates: start: 20070914

REACTIONS (2)
  - BLOOD CREATININE INCREASED [None]
  - HYPOKALAEMIA [None]
